FAERS Safety Report 7496954-X (Version None)
Quarter: 2011Q2

REPORT INFORMATION
  Report Type: 
  Country: None (occurrence: None)
  Receive Date: 20110516
  Receipt Date: 20110506
  Transmission Date: 20111010
  Serious: Yes (Other)
  Sender: FDA-Public Use
  Company Number: 2011MA004337

PATIENT
  Age: 64 Year
  Sex: Male

DRUGS (5)
  1. AMITRIPTYLINE HCL [Concomitant]
  2. VENLAFAXINE [Concomitant]
  3. LEVOTHYROXINE SODIUM [Concomitant]
  4. CITALOPRAM HYDROBROMIDE [Suspect]
     Indication: PRODUCT USED FOR UNKNOWN INDICATION
     Dates: end: 20110321
  5. DIAZEPAM [Concomitant]

REACTIONS (1)
  - MYOPATHY [None]
